FAERS Safety Report 8594911-3 (Version None)
Quarter: 2012Q3

REPORT INFORMATION
  Report Type: 
  Country: None (occurrence: None)
  Receive Date: 20120815
  Receipt Date: 20120807
  Transmission Date: 20120928
  Serious: Yes (Hospitalization, Other)
  Sender: FDA-Public Use
  Company Number: FR-PFIZER INC-2012197388

PATIENT
  Age: 75 Year
  Sex: Male

DRUGS (6)
  1. CORDARONE [Suspect]
     Indication: ATRIAL FIBRILLATION
     Dosage: 200 MG, DAILY
     Route: 048
     Dates: start: 20080101, end: 20120501
  2. FUROSEMIDE [Suspect]
     Indication: PRODUCT USED FOR UNKNOWN INDICATION
     Dosage: 1 DF, DAILY
     Route: 048
     Dates: end: 20120501
  3. LEVOTHYROXINE SODIUM [Suspect]
     Indication: THYROID DISORDER
     Dosage: 25 UG, DAILY
     Route: 048
     Dates: start: 20080530, end: 20120501
  4. POTASSIUM CHLORIDE [Concomitant]
     Dosage: UNK
  5. ASPIRIN [Concomitant]
     Dosage: UNK
  6. LOSARTAN POTASSIUM [Suspect]
     Indication: PRODUCT USED FOR UNKNOWN INDICATION
     Dosage: 1 DF, DAILY
     Route: 048
     Dates: end: 20120501

REACTIONS (8)
  - MALAISE [None]
  - FALL [None]
  - ORTHOSTATIC HYPOTENSION [None]
  - HYPERTHYROIDISM [None]
  - OEDEMA PERIPHERAL [None]
  - HYPONATRAEMIA [None]
  - MUSCULAR WEAKNESS [None]
  - PUPILLARY REFLEX IMPAIRED [None]
